FAERS Safety Report 13663479 (Version 1)
Quarter: 2017Q2

REPORT INFORMATION
  Report Type: Spontaneous
  Country: US (occurrence: US)
  Receive Date: 20170616
  Receipt Date: 20170616
  Transmission Date: 20170830
  Serious: No
  Sender: FDA-Public Use
  Company Number: None

PATIENT
  Sex: Female

DRUGS (1)
  1. BOTOX [Suspect]
     Active Substance: ONABOTULINUMTOXINA
     Indication: TORTICOLLIS
     Dosage: 300 UNITS EVERY 90 DAYS, INTRAMUSCULARLY INTO THE NECK
     Route: 030
     Dates: start: 20170203

REACTIONS (2)
  - Drug effect decreased [None]
  - Dysphagia [None]
